FAERS Safety Report 11521906 (Version 7)
Quarter: 2016Q2

REPORT INFORMATION
  Report Type: Spontaneous
  Country: US (occurrence: US)
  Receive Date: 20150918
  Receipt Date: 20160503
  Transmission Date: 20160815
  Serious: Yes (Other)
  Sender: FDA-Public Use
  Company Number: US-PFIZER INC-2015304093

PATIENT
  Age: 62 Year
  Sex: Male
  Weight: 69 kg

DRUGS (12)
  1. INLYTA [Suspect]
     Active Substance: AXITINIB
     Dosage: 5 MG, 2X/DAY
     Route: 048
     Dates: start: 20150613
  2. DOCUSATE [Concomitant]
     Active Substance: DOCUSATE
     Dosage: 100 MG, DAILY
     Route: 048
  3. CALCIUM CARBONATE. [Concomitant]
     Active Substance: CALCIUM CARBONATE
     Dosage: 500 MG, 2X/DAY
     Route: 048
  4. GABAPENTIN. [Concomitant]
     Active Substance: GABAPENTIN
     Indication: PAIN
     Dosage: 300 MG, 3X/DAY
     Route: 048
     Dates: start: 201506
  5. INLYTA [Suspect]
     Active Substance: AXITINIB
     Dosage: UNK
  6. OXYCONTIN [Concomitant]
     Active Substance: OXYCODONE HYDROCHLORIDE
     Indication: PAIN
     Dosage: 80 MG, 3X/DAY
     Route: 048
     Dates: start: 2014
  7. INLYTA [Suspect]
     Active Substance: AXITINIB
     Dosage: 7 MG, 2X/DAY
     Route: 048
  8. INLYTA [Suspect]
     Active Substance: AXITINIB
     Indication: METASTATIC RENAL CELL CARCINOMA
     Dosage: 5 MG, 2X/DAY
     Route: 048
     Dates: start: 20150604
  9. INLYTA [Suspect]
     Active Substance: AXITINIB
     Dosage: UNK
  10. MIRALAX [Concomitant]
     Active Substance: POLYETHYLENE GLYCOL 3350
     Dosage: 17 G, DAILY
     Route: 048
  11. INLYTA [Suspect]
     Active Substance: AXITINIB
     Dosage: 5 MG, 1X/DAY
     Route: 048
  12. PERCOCET [Concomitant]
     Active Substance: ACETAMINOPHEN\OXYCODONE HYDROCHLORIDE
     Indication: PAIN
     Dosage: 1 TABLET (10/325) EVERY 24 HOURS AS NEEDED
     Dates: start: 2014

REACTIONS (7)
  - Constipation [Not Recovered/Not Resolved]
  - Breast mass [Unknown]
  - Metastatic renal cell carcinoma [Unknown]
  - Colitis [Not Recovered/Not Resolved]
  - Breast pain [Recovered/Resolved]
  - Diarrhoea [Not Recovered/Not Resolved]
  - Disease progression [Unknown]

NARRATIVE: CASE EVENT DATE: 2015
